FAERS Safety Report 9249341 (Version 6)
Quarter: 2016Q4

REPORT INFORMATION
  Report Type: Spontaneous
  Country: US (occurrence: US)
  Receive Date: 20130423
  Receipt Date: 20161228
  Transmission Date: 20170207
  Serious: Yes (Other)
  Sender: FDA-Public Use
  Company Number: US-009507513-1304USA010957

PATIENT
  Sex: Male
  Weight: 117.46 kg

DRUGS (4)
  1. PROPECIA [Suspect]
     Active Substance: FINASTERIDE
     Indication: ALOPECIA
     Dosage: 1 MG, QD
     Route: 048
     Dates: start: 19980628, end: 2009
  2. FINASTERIDE. [Suspect]
     Active Substance: FINASTERIDE
     Indication: ALOPECIA
     Dosage: 5 MG, QD
     Route: 048
     Dates: start: 2010, end: 201201
  3. FINASTERIDE. [Suspect]
     Active Substance: FINASTERIDE
     Dosage: 5 MG, UNK
     Dates: start: 20081015, end: 20120125
  4. PROSCAR [Suspect]
     Active Substance: FINASTERIDE
     Route: 048

REACTIONS (17)
  - Penis injury [Unknown]
  - Suicidal ideation [Not Recovered/Not Resolved]
  - Benign prostatic hyperplasia [Not Recovered/Not Resolved]
  - Loss of libido [Unknown]
  - Testicular failure [Unknown]
  - Anxiety [Not Recovered/Not Resolved]
  - Brain injury [Unknown]
  - Penile size reduced [Unknown]
  - Depression [Not Recovered/Not Resolved]
  - Sexual dysfunction [Not Recovered/Not Resolved]
  - Cognitive disorder [Not Recovered/Not Resolved]
  - Hormone level abnormal [Unknown]
  - Blood testosterone decreased [Unknown]
  - Drug administration error [Unknown]
  - Haematuria [Unknown]
  - Ejaculation disorder [Not Recovered/Not Resolved]
  - Erectile dysfunction [Not Recovered/Not Resolved]

NARRATIVE: CASE EVENT DATE: 199808
